FAERS Safety Report 7325832-1 (Version None)
Quarter: 2011Q1

REPORT INFORMATION
  Report Type: 
  Country: None (occurrence: None)
  Receive Date: 20110218
  Receipt Date: 19931019
  Transmission Date: 20110831
  Serious: Yes (Death, Hospitalization)
  Sender: FDA-Public Use
  Company Number: DSA_44976_2011

PATIENT
  Age: 21 Year
  Sex: Male

DRUGS (3)
  1. PROPRANOLOL [Suspect]
     Indication: COMPLETED SUICIDE
     Dosage: 800 MG 1X NOT THE PRESCRIBED AMOUNT ORAL
     Route: 048
  2. DILTIAZEM HYDROCHLORIDE [Suspect]
     Indication: COMPLETED SUICIDE
     Dosage: 1500 MG 1X, NOT THE PRESCRIBED AMOUNT ORAL
     Route: 048
  3. ETHANOL (ETHANOL) [Suspect]
     Indication: COMPLETED SUICIDE
     Dosage: DF

REACTIONS (8)
  - BLOOD PRESSURE IMMEASURABLE [None]
  - PUPIL FIXED [None]
  - CARDIAC FAILURE ACUTE [None]
  - INCORRECT DOSE ADMINISTERED [None]
  - COMPLETED SUICIDE [None]
  - SELF-MEDICATION [None]
  - CARDIAC ARREST [None]
  - DEPRESSED LEVEL OF CONSCIOUSNESS [None]
